FAERS Safety Report 9719920 (Version 4)
Quarter: 2015Q2

REPORT INFORMATION
  Report Type: Spontaneous
  Country: US (occurrence: US)
  Receive Date: 20131128
  Receipt Date: 20150525
  Transmission Date: 20150821
  Serious: No
  Sender: FDA-Public Use
  Company Number: US-JNJFOC-20131113813

PATIENT
  Age: 66 Year
  Sex: Male
  Weight: 157.85 kg

DRUGS (17)
  1. XARELTO [Suspect]
     Active Substance: RIVAROXABAN
     Indication: EMBOLISM VENOUS
     Route: 048
     Dates: start: 20130218, end: 20130614
  2. FLUTICASONE PROPIONATE. [Concomitant]
     Active Substance: FLUTICASONE PROPIONATE
     Dosage: 2 SPRAYS IN EACH NOSTRIL
     Route: 045
  3. LUTEIN [Concomitant]
     Active Substance: LUTEIN
     Route: 048
  4. ALUMINIUM CHLORIDE [Concomitant]
     Indication: HYPERHIDROSIS
     Dosage: APPLIED TO AFFECTED AREA AS NEEDED TO CONTROL SWEATING
     Route: 061
  5. FLOVENT HFA [Concomitant]
     Active Substance: FLUTICASONE PROPIONATE
     Dosage: 1 PUFF
     Route: 055
  6. GLUCOSAMINE / CHONDROITIN [Concomitant]
     Indication: ARTHRITIS
     Dosage: 1500/300
     Route: 065
  7. BEANO [Concomitant]
     Active Substance: ASPERGILLUS NIGER .ALPHA.-GALACTOSIDASE
     Route: 048
  8. XARELTO [Suspect]
     Active Substance: RIVAROXABAN
     Indication: PROPHYLAXIS
     Route: 048
     Dates: start: 20130218, end: 20130614
  9. OMEPRAZOLE. [Concomitant]
     Active Substance: OMEPRAZOLE
     Indication: GASTROOESOPHAGEAL REFLUX DISEASE
     Route: 048
     Dates: start: 2006
  10. PROVENTIL [Concomitant]
     Active Substance: ALBUTEROL
     Route: 065
  11. ANDROGEL [Concomitant]
     Active Substance: TESTOSTERONE
     Dosage: 50MG/5GM
     Route: 062
     Dates: end: 20130613
  12. AVAPRO [Suspect]
     Active Substance: IRBESARTAN
     Indication: HYPERTENSION
     Route: 048
  13. METAMUCIL [Concomitant]
     Active Substance: PLANTAGO SEED
     Route: 065
  14. VERAPAMIL [Suspect]
     Active Substance: VERAPAMIL HYDROCHLORIDE
     Indication: HYPERTENSION
     Route: 065
  15. ASA [Suspect]
     Active Substance: ASPIRIN
     Indication: PRODUCT USED FOR UNKNOWN INDICATION
     Route: 065
  16. VERAPAMIL HCL [Suspect]
     Active Substance: VERAPAMIL HYDROCHLORIDE
     Indication: PRODUCT USED FOR UNKNOWN INDICATION
     Route: 048
  17. TRAMADOL [Concomitant]
     Active Substance: TRAMADOL
     Indication: PAIN
     Dosage: 1500/300
     Route: 065

REACTIONS (3)
  - Haemorrhagic diathesis [Recovered/Resolved]
  - Joint swelling [Recovered/Resolved]
  - Contusion [Recovered/Resolved]

NARRATIVE: CASE EVENT DATE: 20130402
